FAERS Safety Report 9180969 (Version 1)
Quarter: 2013Q1

REPORT INFORMATION
  Report Type: Spontaneous
  Country: US (occurrence: US)
  Receive Date: 20130322
  Receipt Date: 20130322
  Transmission Date: 20140127
  Serious: Yes (Death, Other)
  Sender: FDA-Public Use
  Company Number: PHEH2013US006652

PATIENT
  Sex: Female
  Weight: 63.6 kg

DRUGS (4)
  1. RECLAST [Suspect]
     Dosage: 5 MG, ONCE A YEAR
     Route: 042
  2. RECLAST [Suspect]
     Dosage: 5 MG, ONCE A YEAR
     Route: 042
  3. RECLAST [Suspect]
     Dosage: 5 MG, ONCE A YEAR
     Route: 042
  4. RECLAST [Suspect]
     Dosage: 5 MG, ONCE A YEAR
     Route: 042
     Dates: start: 20110323

REACTIONS (2)
  - Death [Fatal]
  - Neoplasm malignant [Unknown]
